FAERS Safety Report 16057217 (Version 3)
Quarter: 2020Q3

REPORT INFORMATION
  Report Type: Spontaneous
  Country: US (occurrence: US)
  Receive Date: 20190311
  Receipt Date: 20200707
  Transmission Date: 20201102
  Serious: No
  Sender: FDA-Public Use
  Company Number: US-BAYER-2019-049071

PATIENT
  Age: 64 Year
  Sex: Female

DRUGS (2)
  1. CLIMARA PRO [Suspect]
     Active Substance: ESTRADIOL\LEVONORGESTREL
     Indication: HOT FLUSH
  2. CLIMARA PRO [Suspect]
     Active Substance: ESTRADIOL\LEVONORGESTREL
     Indication: MENOPAUSAL SYMPTOMS
     Dosage: UNK
     Route: 062
     Dates: start: 201901, end: 20190307

REACTIONS (5)
  - Eye swelling [Not Recovered/Not Resolved]
  - Product adhesion issue [None]
  - Hypoaesthesia eye [Not Recovered/Not Resolved]
  - Contact lens intolerance [Recovered/Resolved]
  - Product size issue [None]

NARRATIVE: CASE EVENT DATE: 2019
